FAERS Safety Report 6375763-9 (Version None)
Quarter: 2009Q3

REPORT INFORMATION
  Report Type: 
  Country: None (occurrence: None)
  Receive Date: 20090924
  Receipt Date: 20090915
  Transmission Date: 20100115
  Serious: Yes (Other)
  Sender: FDA-Public Use
  Company Number: US-PFIZER INC-2009268251

PATIENT
  Age: 82 Year
  Sex: Male
  Weight: 79.4 kg

DRUGS (4)
  1. LIPITOR [Suspect]
     Indication: BLOOD CHOLESTEROL INCREASED
     Dosage: 10 MG, 1X/DAY
     Dates: start: 20010101
  2. LISINOPRIL [Concomitant]
     Indication: HYPERTENSION
     Dosage: 25 MG, UNK
  3. PROAIR HFA [Concomitant]
     Dosage: UNK
  4. AZMACORT [Concomitant]
     Dosage: UNK

REACTIONS (6)
  - BLADDER CANCER [None]
  - HEART RATE INCREASED [None]
  - HYPERHIDROSIS [None]
  - MIDDLE INSOMNIA [None]
  - TREMOR [None]
  - WEIGHT DECREASED [None]
